FAERS Safety Report 14742405 (Version 3)
Quarter: 2018Q3

REPORT INFORMATION
  Report Type: Spontaneous
  Country: ES (occurrence: ES)
  Receive Date: 20180410
  Receipt Date: 20180806
  Transmission Date: 20181010
  Serious: Yes (Hospitalization, Other)
  Sender: FDA-Public Use
  Company Number: ES-NAPPMUNDI-GBR-2018-0054499

PATIENT
  Age: 84 Year
  Sex: Female

DRUGS (11)
  1. TARGIN [Suspect]
     Active Substance: NALOXONE HYDROCHLORIDE\OXYCODONE HYDROCHLORIDE
     Dosage: 1 DF, Q12H [STRENGTH 10 MG/ 5 MG]
     Route: 048
     Dates: start: 201712, end: 20180323
  2. HIDROCLOROTIAZIDA [Concomitant]
     Active Substance: HYDROCHLOROTHIAZIDE
  3. PARACETAMOL [Concomitant]
     Active Substance: ACETAMINOPHEN
  4. TARGIN [Suspect]
     Active Substance: NALOXONE HYDROCHLORIDE\OXYCODONE HYDROCHLORIDE
     Dosage: 5 MG/2.5 MG(1 [BROKEN TABLET TARGIN 10MG/5MG] A DAY IN THE MORNING)
     Route: 048
     Dates: start: 20180324
  5. RESOURCE BENEPROTEIN [Concomitant]
     Dosage: 2 DF, UNK
  6. TARGIN [Suspect]
     Active Substance: NALOXONE HYDROCHLORIDE\OXYCODONE HYDROCHLORIDE
     Indication: FLANK PAIN
     Dosage: [STRENGTH 5/2.5 MG]
     Route: 048
     Dates: start: 20180613
  7. DUPHALAC [Concomitant]
     Active Substance: LACTULOSE
  8. AVAMYS [Concomitant]
     Active Substance: FLUTICASONE FUROATE
  9. OSVICAL D [Concomitant]
  10. LANSOPRAZOL [Concomitant]
     Active Substance: LANSOPRAZOLE
  11. METAMIZOLE [Concomitant]
     Active Substance: METAMIZOLE

REACTIONS (6)
  - Deafness [Not Recovered/Not Resolved]
  - Nightmare [Recovered/Resolved]
  - Pneumonia [Unknown]
  - Euphoric mood [Recovered/Resolved]
  - Choking [Unknown]
  - Wrong technique in product usage process [Not Recovered/Not Resolved]

NARRATIVE: CASE EVENT DATE: 20180324
